FAERS Safety Report 23494517 (Version 3)
Quarter: 2024Q1

REPORT INFORMATION
  Report Type: Spontaneous
  Country: AR (occurrence: AR)
  Receive Date: 20240207
  Receipt Date: 20240305
  Transmission Date: 20240410
  Serious: Yes (Hospitalization, Other)
  Sender: FDA-Public Use
  Company Number: AR-GLAXOSMITHKLINE-AR2023AMR134355

PATIENT

DRUGS (1)
  1. ZEJULA [Suspect]
     Active Substance: NIRAPARIB
     Indication: Product used for unknown indication
     Dosage: UNK
     Dates: start: 20231229

REACTIONS (9)
  - Hospitalisation [Unknown]
  - Ascites [Unknown]
  - Influenza [Unknown]
  - Appetite disorder [Unknown]
  - Depression [Unknown]
  - Carbohydrate antigen 125 increased [Recovering/Resolving]
  - Swelling [Unknown]
  - Inflammation [Unknown]
  - General physical health deterioration [Unknown]
